FAERS Safety Report 24006971 (Version 3)
Quarter: 2024Q3

REPORT INFORMATION
  Report Type: Report from Study
  Country: US (occurrence: US)
  Receive Date: 20240624
  Receipt Date: 20240807
  Transmission Date: 20241017
  Serious: Yes (Other)
  Sender: AMGEN
  Company Number: US-AMGEN-USASL2024121409

PATIENT
  Age: 41 Year
  Sex: Male

DRUGS (2)
  1. KRYSTEXXA [Suspect]
     Active Substance: PEGLOTICASE
     Indication: Gout
     Dosage: FIRST INFUSION, Q2WK
     Route: 042
     Dates: start: 20240618
  2. KRYSTEXXA [Suspect]
     Active Substance: PEGLOTICASE
     Dosage: UNK, Q2WK
     Route: 042
     Dates: start: 20240731

REACTIONS (8)
  - Loss of consciousness [Unknown]
  - Blood pressure decreased [Unknown]
  - Fatigue [Unknown]
  - Blood uric acid increased [Unknown]
  - Chest pain [Recovered/Resolved]
  - Pruritus [Unknown]
  - Paraesthesia oral [Unknown]
  - Anxiety [Unknown]

NARRATIVE: CASE EVENT DATE: 20240101
